FAERS Safety Report 21761427 (Version 2)
Quarter: 2023Q1

REPORT INFORMATION
  Report Type: Spontaneous
  Country: US (occurrence: US)
  Receive Date: 20221221
  Receipt Date: 20230315
  Transmission Date: 20230418
  Serious: No
  Sender: FDA-Public Use
  Company Number: US-PFIZER INC-202201387021

PATIENT
  Age: 90 Year
  Sex: Female

DRUGS (1)
  1. IBRANCE [Suspect]
     Active Substance: PALBOCICLIB
     Dosage: DAILY FOR 7 DAYS ON FOLLOWED BY 7 DAYS OFF
     Route: 048

REACTIONS (4)
  - Gastric disorder [Unknown]
  - Asthenia [Unknown]
  - Off label use [Unknown]
  - Product use issue [Unknown]
